FAERS Safety Report 8587471 (Version 3)
Quarter: 2013Q2

REPORT INFORMATION
  Report Type: Spontaneous
  Country: US (occurrence: US)
  Receive Date: 20120531
  Receipt Date: 20130416
  Transmission Date: 20140414
  Serious: Yes (Hospitalization, Other)
  Sender: FDA-Public Use
  Company Number: US-BAYER-2012-052610

PATIENT
  Age: 20 Year
  Sex: Female

DRUGS (23)
  1. YASMIN [Suspect]
     Indication: DYSMENORRHOEA
     Dosage: UNK
     Dates: start: 20050727, end: 20060420
  2. MIDRIN [Concomitant]
     Indication: MIGRAINE
     Dosage: UNK UNK, PRN
  3. VICODIN [Concomitant]
     Dosage: TWO, PRN
     Route: 048
  4. ALLEGRA-D [Concomitant]
     Indication: RHINITIS ALLERGIC
     Dosage: 180 MG, QHS
     Route: 048
  5. PERCOCET [Concomitant]
     Indication: HEADACHE
  6. ULTRACET [Concomitant]
  7. CITALOPRAM [Concomitant]
     Indication: MAJOR DEPRESSION
     Dosage: 10 MG, QHS
     Route: 048
  8. TOPAMAX [Concomitant]
     Indication: MAJOR DEPRESSION
     Dosage: 300 MG, QHS
     Route: 048
  9. TOPAMAX [Concomitant]
     Indication: MAJOR DEPRESSION
     Dosage: 100 MG, UNK
     Dates: start: 20060305
  10. CALCIUM [Concomitant]
     Dosage: DAILY
  11. MVI [Concomitant]
     Dosage: DAILY
  12. PROMETHAZINE HYDROCHLORIDE [Concomitant]
     Dosage: 25 MG, UNK
     Dates: start: 20060304
  13. ISOMETHEPTENE/DICHLORALPHENAZONE/APAP [Concomitant]
     Dosage: 65-325
     Dates: start: 20060417
  14. HYDROCODONE W/ACETAMINOPHEN [Concomitant]
     Dosage: 5-500 MG
     Dates: start: 20060418
  15. ULTRAM [Concomitant]
     Dosage: 50 MG, ONE TO TWO TABLETS EVERY 6 HOURS
     Dates: start: 20060418
  16. TRAMADOL HYDROCHLORIDE [Concomitant]
     Dosage: 50 MG, UNK
     Dates: start: 20060419
  17. DEMEROL [Concomitant]
     Route: 042
  18. PHENERGAN [Concomitant]
  19. ZOFRAN [Concomitant]
  20. TORADOL [Concomitant]
     Indication: HEADACHE
  21. NORMAL SALINE [Concomitant]
     Route: 042
  22. OXYCODONE [Concomitant]
     Indication: BREAKTHROUGH PAIN
     Dosage: UNK UNK, PRN
  23. MAXALT [Concomitant]

REACTIONS (10)
  - Superior sagittal sinus thrombosis [None]
  - Occipital neuralgia [None]
  - Benign intracranial hypertension [None]
  - Depression [None]
  - Injury [None]
  - Emotional distress [None]
  - Pain [None]
  - Headache [None]
  - Headache [None]
  - Intracranial pressure increased [None]
